FAERS Safety Report 19933082 (Version 1)
Quarter: 2021Q4

REPORT INFORMATION
  Report Type: Other
  Country: KR (occurrence: KR)
  Receive Date: 20211008
  Receipt Date: 20211008
  Transmission Date: 20220303
  Serious: Yes (Other)
  Sender: FDA-Public Use
  Company Number: KR-ROCHE-2923964

PATIENT
  Age: 72 Year
  Sex: Male

DRUGS (52)
  1. OBINUTUZUMAB [Suspect]
     Active Substance: OBINUTUZUMAB
     Indication: Chronic lymphocytic leukaemia
     Dosage: CYCLE 1 DAY 1
     Route: 042
     Dates: start: 20210422
  2. OBINUTUZUMAB [Suspect]
     Active Substance: OBINUTUZUMAB
     Dosage: CYCLE 1 DAY 8
     Route: 042
     Dates: start: 20210429
  3. OBINUTUZUMAB [Suspect]
     Active Substance: OBINUTUZUMAB
     Dosage: CYCLE 1 DAY 15
     Route: 042
     Dates: start: 20210507
  4. OBINUTUZUMAB [Suspect]
     Active Substance: OBINUTUZUMAB
     Dosage: CYCLE 2 DAY 1
     Route: 042
     Dates: start: 20210520
  5. OBINUTUZUMAB [Suspect]
     Active Substance: OBINUTUZUMAB
     Dosage: CYCLE 3 DAY 1
     Route: 042
     Dates: start: 20210618
  6. OBINUTUZUMAB [Suspect]
     Active Substance: OBINUTUZUMAB
     Dosage: CYCLE 4 DAY 1
     Route: 042
     Dates: start: 20210716
  7. OBINUTUZUMAB [Suspect]
     Active Substance: OBINUTUZUMAB
     Dosage: CYCLE 5 DAY 1
     Route: 042
     Dates: start: 20210813
  8. OBINUTUZUMAB [Suspect]
     Active Substance: OBINUTUZUMAB
     Dosage: CYCLE 6 DAY 1
     Route: 042
     Dates: start: 20210911
  9. CHLORAMBUCIL [Suspect]
     Active Substance: CHLORAMBUCIL
     Indication: Chronic lymphocytic leukaemia
     Dosage: CYCLE 1
     Route: 048
     Dates: start: 20210422, end: 20210422
  10. CHLORAMBUCIL [Suspect]
     Active Substance: CHLORAMBUCIL
     Dosage: CYCLE 1
     Route: 048
     Dates: start: 20210507, end: 20210507
  11. CHLORAMBUCIL [Suspect]
     Active Substance: CHLORAMBUCIL
     Dosage: CYCLE 2
     Route: 048
     Dates: start: 20210520, end: 20210520
  12. CHLORAMBUCIL [Suspect]
     Active Substance: CHLORAMBUCIL
     Dosage: CYCLE 2
     Route: 048
     Dates: start: 20210603, end: 20210603
  13. CHLORAMBUCIL [Suspect]
     Active Substance: CHLORAMBUCIL
     Dosage: CYCLE 3
     Route: 048
     Dates: start: 20210618, end: 20210618
  14. CHLORAMBUCIL [Suspect]
     Active Substance: CHLORAMBUCIL
     Dosage: CYCLE 3
     Route: 048
     Dates: start: 20210702, end: 20210702
  15. CHLORAMBUCIL [Suspect]
     Active Substance: CHLORAMBUCIL
     Dosage: CYCLE 4
     Route: 048
     Dates: start: 20210716, end: 20210716
  16. CHLORAMBUCIL [Suspect]
     Active Substance: CHLORAMBUCIL
     Dosage: CYCLE 4
     Route: 048
     Dates: start: 20210730, end: 20210730
  17. CHLORAMBUCIL [Suspect]
     Active Substance: CHLORAMBUCIL
     Dosage: CYCLE 5
     Route: 048
     Dates: start: 20210813, end: 20210813
  18. CHLORAMBUCIL [Suspect]
     Active Substance: CHLORAMBUCIL
     Dosage: CYCLE 5
     Route: 048
     Dates: start: 20210827, end: 20210827
  19. CHLORAMBUCIL [Suspect]
     Active Substance: CHLORAMBUCIL
     Dosage: CYCLE 6
     Route: 048
     Dates: start: 20210911, end: 20210911
  20. CHLORAMBUCIL [Suspect]
     Active Substance: CHLORAMBUCIL
     Dosage: CYCLE 6
     Route: 048
     Dates: start: 20210925, end: 20210925
  21. DEXAMETHASONE SODIUM PHOSPHATE [Concomitant]
     Active Substance: DEXAMETHASONE SODIUM PHOSPHATE
     Indication: Infusion related reaction
     Route: 042
     Dates: start: 20210422, end: 20210911
  22. PENIRAMIN [Concomitant]
     Indication: Infusion related reaction
     Route: 048
     Dates: start: 20210422, end: 20210911
  23. PENIRAMIN [Concomitant]
     Indication: Prophylaxis
     Route: 048
     Dates: start: 20210717, end: 20210721
  24. ACETAMINOPHEN [Concomitant]
     Active Substance: ACETAMINOPHEN
     Indication: Infusion related reaction
     Route: 048
     Dates: start: 20210422, end: 20210423
  25. ACETAMINOPHEN [Concomitant]
     Active Substance: ACETAMINOPHEN
     Route: 048
     Dates: start: 20210520, end: 20210911
  26. MEPERIDINE HYDROCHLORIDE [Concomitant]
     Active Substance: MEPERIDINE HYDROCHLORIDE
     Route: 042
     Dates: start: 20210421, end: 20210421
  27. MEPERIDINE HYDROCHLORIDE [Concomitant]
     Active Substance: MEPERIDINE HYDROCHLORIDE
     Route: 042
     Dates: start: 20210715, end: 20210715
  28. PLAVIX [Concomitant]
     Active Substance: CLOPIDOGREL BISULFATE
     Indication: Angina pectoris
     Route: 048
     Dates: start: 20210422, end: 20210506
  29. BISOPROLOL FUMARATE [Concomitant]
     Active Substance: BISOPROLOL FUMARATE
     Indication: Angina pectoris
     Route: 048
     Dates: start: 20210422, end: 20210527
  30. BISOPROLOL FUMARATE [Concomitant]
     Active Substance: BISOPROLOL FUMARATE
     Route: 048
     Dates: start: 20210619, end: 20210624
  31. BISOPROLOL FUMARATE [Concomitant]
     Active Substance: BISOPROLOL FUMARATE
     Route: 048
     Dates: start: 20210715, end: 20210722
  32. CRESTOR [Concomitant]
     Active Substance: ROSUVASTATIN CALCIUM
     Indication: Angina pectoris
     Route: 048
     Dates: start: 20210422, end: 20210506
  33. LASIX [Concomitant]
     Active Substance: FUROSEMIDE
     Indication: Prophylaxis
     Route: 048
     Dates: start: 20210422, end: 20210517
  34. LASIX [Concomitant]
     Active Substance: FUROSEMIDE
     Route: 048
     Dates: start: 20210519, end: 20210527
  35. LASIX [Concomitant]
     Active Substance: FUROSEMIDE
     Route: 048
     Dates: start: 20210618, end: 20210624
  36. LASIX [Concomitant]
     Active Substance: FUROSEMIDE
     Route: 048
     Dates: start: 20210715, end: 20210722
  37. K CAB [Concomitant]
     Indication: Prophylaxis
     Route: 048
     Dates: start: 20210423, end: 20210506
  38. SULFAMETHOXAZOLE\TRIMETHOPRIM [Concomitant]
     Active Substance: SULFAMETHOXAZOLE\TRIMETHOPRIM
     Indication: Prophylaxis
     Dosage: 1 OTHER
     Route: 048
     Dates: start: 20210423
  39. FLUCOZOLE [Concomitant]
     Indication: Prophylaxis
     Route: 048
     Dates: start: 20210423
  40. LECTACIN [Concomitant]
     Indication: Prophylaxis
     Route: 048
     Dates: start: 20210507, end: 20210527
  41. LECTACIN [Concomitant]
     Route: 048
     Dates: start: 20210618, end: 20210624
  42. GASPIN (SOUTH KOREA) [Concomitant]
     Indication: Prophylaxis
     Route: 048
     Dates: start: 20210504, end: 20210506
  43. GASPIN (SOUTH KOREA) [Concomitant]
     Route: 048
     Dates: start: 20210517, end: 20210520
  44. GASPIN (SOUTH KOREA) [Concomitant]
     Route: 048
     Dates: start: 20210527, end: 20210617
  45. GASPIN (SOUTH KOREA) [Concomitant]
     Route: 048
     Dates: start: 20210624, end: 20210715
  46. GASPIN (SOUTH KOREA) [Concomitant]
     Route: 048
     Dates: start: 20210722, end: 20210812
  47. GASPIN (SOUTH KOREA) [Concomitant]
     Route: 048
     Dates: start: 20210823, end: 20210910
  48. GASPIN (SOUTH KOREA) [Concomitant]
     Route: 048
     Dates: start: 20210923
  49. CLOPIDOGREL BISULFATE [Concomitant]
     Active Substance: CLOPIDOGREL BISULFATE
     Indication: Angina pectoris
     Route: 048
     Dates: start: 20210507, end: 20210517
  50. CLOPIDOGREL BISULFATE [Concomitant]
     Active Substance: CLOPIDOGREL BISULFATE
     Route: 048
     Dates: start: 20210519, end: 20210527
  51. CLOPIDOGREL BISULFATE [Concomitant]
     Active Substance: CLOPIDOGREL BISULFATE
     Route: 048
     Dates: start: 20210618, end: 20210624
  52. CLOPIDOGREL BISULFATE [Concomitant]
     Active Substance: CLOPIDOGREL BISULFATE
     Route: 048
     Dates: start: 20210715, end: 20210722

REACTIONS (3)
  - Feeling cold [Recovered/Resolved]
  - Chest discomfort [Recovered/Resolved]
  - Cytopenia [Recovered/Resolved]

NARRATIVE: CASE EVENT DATE: 20210422
